FAERS Safety Report 21540279 (Version 1)
Quarter: 2022Q4

REPORT INFORMATION
  Report Type: Report from Study
  Country: US (occurrence: US)
  Receive Date: 20221102
  Receipt Date: 20221102
  Transmission Date: 20230112
  Serious: Yes (Hospitalization)
  Sender: FDA-Public Use
  Company Number: US-NOVARTISPH-NVSC2022US243540

PATIENT
  Sex: Female

DRUGS (1)
  1. PIQRAY [Suspect]
     Active Substance: ALPELISIB
     Indication: Breast cancer
     Dosage: 300 MG, QD
     Route: 048
     Dates: start: 20221003, end: 202210

REACTIONS (5)
  - Pleural effusion [Not Recovered/Not Resolved]
  - Dyspnoea [Recovered/Resolved]
  - Hyperglycaemia [Recovering/Resolving]
  - Taste disorder [Recovering/Resolving]
  - Epistaxis [Recovered/Resolved]
